FAERS Safety Report 9146355 (Version 1)
Quarter: 2013Q1

REPORT INFORMATION
  Report Type: Spontaneous
  Country: US (occurrence: None)
  Receive Date: 20130227
  Receipt Date: 20130227
  Transmission Date: 20140127
  Serious: Yes (Hospitalization)
  Sender: FDA-Public Use
  Company Number: None

PATIENT
  Age: 64 Year
  Sex: Male
  Weight: 78.6 kg

DRUGS (1)
  1. AMOXICILLINCLAVULANATE [Suspect]
     Dosage: 1 TAB BID PO
     Route: 048
     Dates: start: 20121128

REACTIONS (2)
  - Chest pain [None]
  - Tachycardia [None]
